FAERS Safety Report 14859959 (Version 2)
Quarter: 2018Q2

REPORT INFORMATION
  Report Type: Spontaneous
  Country: JP (occurrence: JP)
  Receive Date: 20180508
  Receipt Date: 20180517
  Transmission Date: 20180711
  Serious: Yes (Death)
  Sender: FDA-Public Use
  Company Number: JP-B.I. PHARMACEUTICALS,INC./RIDGEFIELD-2018-NB-002451

PATIENT
  Age: 82 Year
  Sex: Male

DRUGS (1)
  1. PRAZAXA [Suspect]
     Active Substance: DABIGATRAN ETEXILATE MESYLATE
     Indication: ATRIAL FIBRILLATION
     Route: 048

REACTIONS (5)
  - Rib fracture [Fatal]
  - Traumatic haemothorax [Fatal]
  - Blood pressure decreased [Fatal]
  - Spinal fracture [Fatal]
  - Road traffic accident [Fatal]

NARRATIVE: CASE EVENT DATE: 20180506
